FAERS Safety Report 23059738 (Version 5)
Quarter: 2023Q4

REPORT INFORMATION
  Report Type: Report from Study
  Country: GB (occurrence: GB)
  Receive Date: 20231012
  Receipt Date: 20231206
  Transmission Date: 20240110
  Serious: Yes (Life-Threatening, Hospitalization)
  Sender: FDA-Public Use
  Company Number: GB-ARGENX-2023-ARGX-GB003268

PATIENT

DRUGS (1)
  1. EFGARTIGIMOD ALFA [Suspect]
     Active Substance: EFGARTIGIMOD ALFA
     Indication: Myasthenia gravis
     Dosage: UNK
     Route: 065

REACTIONS (4)
  - Hospitalisation [Unknown]
  - Dysphagia [Recovering/Resolving]
  - Myasthenia gravis [Recovering/Resolving]
  - Poor venous access [Unknown]
